FAERS Safety Report 5609665-X (Version None)
Quarter: 2008Q1

REPORT INFORMATION
  Report Type: 
  Country: None (occurrence: None)
  Receive Date: 20080131
  Receipt Date: 20080123
  Transmission Date: 20080703
  Serious: Yes (Hospitalization)
  Sender: FDA-Public Use
  Company Number: B0502148A

PATIENT
  Age: 27 Year
  Sex: Male
  Weight: 89 kg

DRUGS (4)
  1. PAROXETINE [Suspect]
     Indication: OBSESSIVE-COMPULSIVE DISORDER
     Dosage: 20MG TWICE PER DAY
     Route: 048
     Dates: start: 19970707
  2. RISPERDAL [Suspect]
     Indication: SCHIZOPHRENIA
     Dosage: 1MG PER DAY
     Route: 048
     Dates: start: 20030316
  3. OXAZEPAM [Suspect]
     Indication: DRUG USE FOR UNKNOWN INDICATION
     Dosage: 50MG FOUR TIMES PER DAY
     Route: 048
     Dates: start: 20030316
  4. CANNABIS [Concomitant]
     Route: 055
     Dates: start: 20041010

REACTIONS (4)
  - HALLUCINATION [None]
  - HYPERHIDROSIS [None]
  - OBSESSIVE-COMPULSIVE DISORDER [None]
  - PSYCHOMOTOR HYPERACTIVITY [None]
